FAERS Safety Report 8044942-7 (Version None)
Quarter: 2012Q1

REPORT INFORMATION
  Report Type: 
  Country: None (occurrence: None)
  Receive Date: 20120113
  Receipt Date: 20120110
  Transmission Date: 20120608
  Serious: Yes (Death, Hospitalization)
  Sender: FDA-Public Use
  Company Number: DE-ROCHE-1029184

PATIENT
  Sex: Female
  Weight: 42 kg

DRUGS (12)
  1. DEXAMETHASONE SODIUM PHOSPHATE [Concomitant]
     Dates: end: 20111225
  2. BISOPROLOL FUMARATE [Concomitant]
     Dates: end: 20111225
  3. MELPERON [Concomitant]
     Dates: start: 20111013, end: 20111225
  4. FRESUBIN [Concomitant]
     Dates: end: 20111225
  5. PEMETREXED DISODIUM [Suspect]
     Indication: NON-SMALL CELL LUNG CANCER
     Dosage: LAST DOSE PRIOR TTO SAE  10/NOV/2011
     Route: 042
     Dates: start: 20111020
  6. LEVOTHYROXINE SODIUM [Concomitant]
     Dates: end: 20111225
  7. PANTOPRAZOLE SODIUM [Concomitant]
     Dates: end: 20111225
  8. AVASTIN [Suspect]
     Indication: NON-SMALL CELL LUNG CANCER
     Dosage: LAST DOSE PRIOR TO SAE  10/NOV/2011
     Route: 042
     Dates: start: 20111020
  9. METAMIZOL [Concomitant]
     Dates: end: 20111225
  10. OXYCODONE HCL [Concomitant]
     Dates: start: 20111013, end: 20111225
  11. LENDORMIN [Concomitant]
     Dates: end: 20111225
  12. ALLOPURINOL [Concomitant]
     Dates: end: 20111225

REACTIONS (1)
  - GENERAL PHYSICAL HEALTH DETERIORATION [None]
